FAERS Safety Report 6593878-7 (Version None)
Quarter: 2010Q1

REPORT INFORMATION
  Report Type: 
  Country: None (occurrence: None)
  Receive Date: 20100222
  Receipt Date: 20100209
  Transmission Date: 20100710
  Serious: Yes (Other)
  Sender: FDA-Public Use
  Company Number: US-ELI_LILLY_AND_COMPANY-US201002003004

PATIENT
  Age: 20 Year
  Sex: Male

DRUGS (3)
  1. ZYPREXA [Suspect]
     Indication: SCHIZOPHRENIA
     Dosage: 40 MG, DAILY (1/D)
  2. ZYPREXA [Suspect]
     Dosage: 15 MG, DAILY (1/D)
  3. RISPERDAL CONSTA [Concomitant]
     Indication: SCHIZOPHRENIA
     Dosage: 50 MG, 2/M
     Route: 030

REACTIONS (2)
  - OVERDOSE [None]
  - WEIGHT INCREASED [None]
